FAERS Safety Report 4446663-6 (Version None)
Quarter: 2004Q3

REPORT INFORMATION
  Report Type: 
  Country: None (occurrence: None)
  Receive Date: 20040908
  Receipt Date: 20040823
  Transmission Date: 20050211
  Serious: Yes (Other)
  Sender: FDA-Public Use
  Company Number: 2004058245

PATIENT
  Age: 59 Year
  Sex: Male
  Weight: 68.0396 kg

DRUGS (5)
  1. BENGAY PAIN RELIEVING PATCH (METHOL) [Suspect]
     Indication: ARTHRALGIA
     Dosage: ONE PATCH DAILY, TOPICAL
     Route: 061
     Dates: start: 20040812, end: 20040822
  2. BENGAY ULTRA STRENGTH PATCH (MENTHOL) [Suspect]
     Indication: ARTHRALGIA
     Dosage: ONE PATCH FOR 3 DAYS, TOPICAL
     Route: 061
     Dates: start: 20040819, end: 20040821
  3. MOTRIN [Suspect]
     Indication: ARTHRITIS
     Dosage: DOSE AND FREQUENCY
  4. PHENYTOIN SODIUM [Concomitant]
  5. PHENOBARBITAL TAB [Concomitant]

REACTIONS (1)
  - ANGIONEUROTIC OEDEMA [None]
